FAERS Safety Report 5917971-4 (Version None)
Quarter: 2008Q4

REPORT INFORMATION
  Report Type: 
  Country: None (occurrence: None)
  Receive Date: 20081014
  Receipt Date: 20081001
  Transmission Date: 20090506
  Serious: Yes (Other)
  Sender: FDA-Public Use
  Company Number: IT-GENENTECH-269419

PATIENT
  Sex: Female

DRUGS (3)
  1. AVASTIN [Suspect]
     Indication: COLON CANCER
     Dosage: 400 MG, UNK
     Route: 042
     Dates: start: 20071025
  2. FLUOROURACIL [Suspect]
     Indication: COLON CANCER
     Dosage: 3400 MG, UNK
     Route: 042
     Dates: start: 20071025, end: 20080701
  3. CAMPTOSAR [Suspect]
     Indication: COLON CANCER
     Dosage: 320 MG, UNK
     Route: 042
     Dates: start: 20071025, end: 20080701

REACTIONS (2)
  - HELLP SYNDROME [None]
  - THROMBOCYTOPENIA [None]
